FAERS Safety Report 14132459 (Version 2)
Quarter: 2017Q4

REPORT INFORMATION
  Report Type: Spontaneous
  Country: US (occurrence: US)
  Receive Date: 20171026
  Receipt Date: 20171115
  Transmission Date: 20180321
  Serious: No
  Sender: FDA-Public Use
  Company Number: US-FRESENIUS MEDICAL CARE RENAL THERAPIES GROUP-FMC-1710-001247

PATIENT
  Age: 53 Year
  Sex: Female
  Weight: 77 kg

DRUGS (16)
  1. FOLIC ACID. [Concomitant]
     Active Substance: FOLIC ACID
  2. METOPROLOL SUCCINATE. [Concomitant]
     Active Substance: METOPROLOL SUCCINATE
  3. CARAFATE [Concomitant]
     Active Substance: SUCRALFATE
  4. LEVOTHYROXINE. [Concomitant]
     Active Substance: LEVOTHYROXINE
  5. CALCIUM CARBONATE. [Concomitant]
     Active Substance: CALCIUM CARBONATE
  6. LOSARTAN. [Concomitant]
     Active Substance: LOSARTAN
  7. DELFLEX WITH DEXTROSE 2.5% LOW MAGNESIUM LOW CALCIUM [Suspect]
     Active Substance: CALCIUM CHLORIDE\DEXTROSE\MAGNESIUM CHLORIDE\SODIUM CHLORIDE\SODIUM LACTATE
     Indication: END STAGE RENAL DISEASE
     Dosage: 1800ML WITH X 7 EXCHANGES WITH TIDAL VOLUME OF 1600ML
     Route: 033
     Dates: start: 20140506
  8. DILAUDID [Concomitant]
     Active Substance: HYDROMORPHONE HYDROCHLORIDE
  9. DELFLEX WITH DEXTROSE 4.25% LOW MAGNESIUM LOW CALCIUM [Suspect]
     Active Substance: CALCIUM CHLORIDE\DEXTROSE\MAGNESIUM CHLORIDE\SODIUM CHLORIDE\SODIUM LACTATE
     Indication: END STAGE RENAL DISEASE
     Dosage: 1800ML WITH X 7 EXCHANGES WITH TIDAL VOLUME OF 1600ML
     Route: 033
     Dates: start: 20140506
  10. LACTULOSE. [Concomitant]
     Active Substance: LACTULOSE
  11. DELFLEX WITH DEXTROSE 1.5% LOW MAGNESIUM LOW CALCIUM [Suspect]
     Active Substance: CALCIUM CHLORIDE\DEXTROSE\MAGNESIUM CHLORIDE\SODIUM CHLORIDE\SODIUM LACTATE
     Indication: END STAGE RENAL DISEASE
     Dosage: 1800ML WITH X 7 EXCHANGES WITH TIDAL VOLUME OF 1600ML
     Route: 033
     Dates: start: 20140506
  12. AMITRIPTYLINE [Concomitant]
     Active Substance: AMITRIPTYLINE
  13. CHANTIX [Concomitant]
     Active Substance: VARENICLINE TARTRATE
  14. RENVELA [Concomitant]
     Active Substance: SEVELAMER CARBONATE
  15. XANAX [Concomitant]
     Active Substance: ALPRAZOLAM
  16. CALCIUM ACETATE. [Concomitant]
     Active Substance: CALCIUM ACETATE

REACTIONS (1)
  - Abdominal pain [Unknown]

NARRATIVE: CASE EVENT DATE: 20171013
